FAERS Safety Report 17241676 (Version 1)
Quarter: 2020Q1

REPORT INFORMATION
  Report Type: Spontaneous
  Country: FR (occurrence: FR)
  Receive Date: 20200107
  Receipt Date: 20200107
  Transmission Date: 20200409
  Serious: Yes (Other)
  Sender: FDA-Public Use
  Company Number: FR-PFIZER INC-2020003006

PATIENT
  Age: 80 Year
  Sex: Female

DRUGS (6)
  1. DOLIPRANE [Suspect]
     Active Substance: ACETAMINOPHEN
     Indication: PAIN
     Dosage: 2000 MG, QD
     Route: 065
  2. MODURETIC 5-50 [Suspect]
     Active Substance: AMILORIDE HYDROCHLORIDE\HYDROCHLOROTHIAZIDE
     Dosage: 1 DF, UNK
     Route: 065
  3. KARDEGIC [Suspect]
     Active Substance: ASPIRIN DL-LYSINE
     Indication: PALPITATIONS
     Dosage: UNK
     Route: 065
  4. XARELTO [Suspect]
     Active Substance: RIVAROXABAN
     Indication: THROMBOSIS
     Dosage: UNK
     Route: 065
  5. MODURETIC 5-50 [Suspect]
     Active Substance: AMILORIDE HYDROCHLORIDE\HYDROCHLOROTHIAZIDE
     Dosage: 0.5 DF, UNK
     Route: 065
  6. CORDARONE [Suspect]
     Active Substance: AMIODARONE HYDROCHLORIDE
     Dosage: 0.5 DF, UNK
     Route: 065

REACTIONS (16)
  - Dizziness [Unknown]
  - Haemorrhage [Unknown]
  - Dyspnoea [Unknown]
  - Myalgia [Unknown]
  - Nasal congestion [Unknown]
  - Varicose vein [Unknown]
  - Heart rate decreased [Unknown]
  - Burning sensation [Unknown]
  - Wound [Unknown]
  - Abnormal behaviour [Unknown]
  - Blood pressure decreased [Unknown]
  - Fatigue [Unknown]
  - Cough [Unknown]
  - Renal pain [Unknown]
  - Headache [Unknown]
  - Abdominal pain lower [Unknown]
